FAERS Safety Report 5790652-6 (Version None)
Quarter: 2008Q2

REPORT INFORMATION
  Report Type: 
  Country: None (occurrence: None)
  Receive Date: 20080626
  Receipt Date: 20080502
  Transmission Date: 20081010
  Serious: No
  Sender: FDA-Public Use
  Company Number: A0726036A

PATIENT

DRUGS (2)
  1. ALLI [Suspect]
  2. LASIX [Concomitant]

REACTIONS (4)
  - ABDOMINAL DISTENSION [None]
  - CONDITION AGGRAVATED [None]
  - FLUID RETENTION [None]
  - WEIGHT FLUCTUATION [None]
